FAERS Safety Report 7598459-4 (Version None)
Quarter: 2011Q3

REPORT INFORMATION
  Report Type: 
  Country: None (occurrence: None)
  Receive Date: 20110708
  Receipt Date: 20110705
  Transmission Date: 20111222
  Serious: Yes (Death)
  Sender: FDA-Public Use
  Company Number: IT-ELI_LILLY_AND_COMPANY-IT201107001963

PATIENT
  Age: 74 Year
  Sex: Female

DRUGS (2)
  1. GEMCITABINE HYDROCHLORIDE [Suspect]
     Indication: LUNG ADENOCARCINOMA STAGE IV
     Dosage: 1200 MG/M2, ON DAYS 1 AND 8 EVERY 3 WEEKS FOR A MAXIMUM OF SIX CYCLES
     Route: 042
  2. SORAFENIB [Concomitant]
     Indication: LUNG ADENOCARCINOMA STAGE IV
     Dosage: 400 MG, BID
     Route: 048

REACTIONS (1)
  - LARGE INTESTINE PERFORATION [None]
